FAERS Safety Report 7432055 (Version 3)
Quarter: 2013Q4

REPORT INFORMATION
  Report Type: Spontaneous
  Country: US (occurrence: US)
  Receive Date: 20100624
  Receipt Date: 20131118
  Transmission Date: 20140711
  Serious: Yes (Hospitalization, Other)
  Sender: FDA-Public Use
  Company Number: US-BAYER-201025788NA

PATIENT
  Age: 25 Year
  Sex: Female
  Weight: 90.7 kg

DRUGS (9)
  1. YAZ [Suspect]
     Indication: PREMENSTRUAL SYNDROME
     Dosage: UNK
     Route: 048
  2. YAZ [Suspect]
     Indication: PREMENSTRUAL DYSPHORIC DISORDER
  3. YASMIN [Suspect]
     Indication: PREMENSTRUAL SYNDROME
     Dosage: UNK
  4. YASMIN [Suspect]
     Indication: PREMENSTRUAL DYSPHORIC DISORDER
  5. OCELLA [Suspect]
     Indication: PREMENSTRUAL SYNDROME
     Dosage: UNK
  6. OCELLA [Suspect]
     Indication: PREMENSTRUAL DYSPHORIC DISORDER
  7. CITALOPRAM [Concomitant]
     Dosage: DAILY DOSE 40 MG
     Route: 048
  8. INDOMETHACIN [Concomitant]
     Dosage: 25 MG, UNK
  9. KEFLEX [Concomitant]
     Dosage: 500 MG, UNK

REACTIONS (9)
  - Cholecystitis [None]
  - Cholelithiasis [None]
  - Cholesterosis [None]
  - Mental disorder [None]
  - Abdominal pain upper [None]
  - Decreased appetite [None]
  - Nausea [None]
  - Vomiting [None]
  - Diarrhoea [None]
